APPROVED DRUG PRODUCT: AEROLATE
Active Ingredient: THEOPHYLLINE
Strength: 150MG/15ML
Dosage Form/Route: SOLUTION;ORAL
Application: A089141 | Product #001
Applicant: FLEMING AND CO PHARMACEUTICALS INC
Approved: Dec 3, 1986 | RLD: No | RS: No | Type: DISCN